FAERS Safety Report 7595062-7 (Version None)
Quarter: 2011Q3

REPORT INFORMATION
  Report Type: 
  Country: None (occurrence: None)
  Receive Date: 20110707
  Receipt Date: 20110621
  Transmission Date: 20111222
  Serious: No
  Sender: FDA-Public Use
  Company Number: US-B.I. PHARMACEUTICALS,INC./RIDGEFIELD-2011-BP-13515BP

PATIENT
  Age: 82 Year
  Sex: Male

DRUGS (14)
  1. GLIPIZIDE [Concomitant]
     Dosage: 5 MG
     Route: 048
  2. COQ10 [Concomitant]
     Dosage: 100 MG
     Route: 048
  3. SIMVASTATIN [Concomitant]
     Dosage: 40 MG
     Route: 048
  4. LISINOPRIL [Concomitant]
     Dosage: 5 MG
     Route: 048
  5. FUROSEMIDE [Concomitant]
     Dosage: 20 MG
     Route: 048
  6. PRADAXA [Suspect]
     Indication: ATRIAL FIBRILLATION
     Dosage: 300 MG
     Route: 048
     Dates: start: 20110401, end: 20110516
  7. MULTIPLE VITAMIN [Concomitant]
     Dosage: ONE A DAY
     Route: 048
  8. FLUNISOLIDE NASAL [Concomitant]
     Route: 048
  9. ALLOPURINOL [Concomitant]
     Dosage: 200 MG
     Route: 048
  10. SAW PALMETTO [Concomitant]
     Dosage: 160 MG
     Route: 048
  11. OMEPRAZOLE [Concomitant]
     Dosage: 20 MCG
     Route: 048
  12. METOPROLOL TARTRATE [Concomitant]
     Dosage: 25 MG
     Route: 048
  13. CYANOCOBALAMIN [Concomitant]
     Dosage: 500 MCG
     Route: 048
  14. ALBUTEROL INHALER [Concomitant]
     Route: 055

REACTIONS (4)
  - PROCTALGIA [None]
  - HAEMORRHOIDAL HAEMORRHAGE [None]
  - DIARRHOEA [None]
  - GASTROINTESTINAL HAEMORRHAGE [None]
